FAERS Safety Report 4633140-2 (Version None)
Quarter: 2005Q2

REPORT INFORMATION
  Report Type: 
  Country: None (occurrence: None)
  Receive Date: 20050412
  Receipt Date: 20050405
  Transmission Date: 20051028
  Serious: Yes (Disabling)
  Sender: FDA-Public Use
  Company Number: GB-GLAXOSMITHKLINE-B0376898A

PATIENT
  Age: 37 Year
  Sex: Female
  Weight: 60 kg

DRUGS (2)
  1. ZOFRAN [Suspect]
     Indication: NAUSEA
     Dosage: 4MG SINGLE DOSE
     Route: 042
     Dates: start: 20050317, end: 20050317
  2. PARACETAMOL [Concomitant]
     Route: 065

REACTIONS (2)
  - DYSTONIA [None]
  - HYPERVENTILATION [None]
